FAERS Safety Report 13429236 (Version 1)
Quarter: 2017Q2

REPORT INFORMATION
  Report Type: Spontaneous
  Country: US (occurrence: US)
  Receive Date: 20170411
  Receipt Date: 20170411
  Transmission Date: 20170830
  Serious: No
  Sender: FDA-Public Use
  Company Number: US-SILVERGATE PHARMACEUTICALS, INC.-2017SIL00002

PATIENT
  Age: 5 Year
  Sex: Male

DRUGS (2)
  1. EPANED [Suspect]
     Active Substance: ENALAPRIL MALEATE
     Dosage: 2.5 MG, 2X/DAY
     Dates: start: 2014, end: 201703
  2. EPANED [Suspect]
     Active Substance: ENALAPRIL MALEATE
     Dosage: 2.5 MG, 2X/DAY
     Dates: start: 201703

REACTIONS (5)
  - Abnormal behaviour [Not Recovered/Not Resolved]
  - Inappropriate affect [Not Recovered/Not Resolved]
  - Insomnia [Not Recovered/Not Resolved]
  - Somnolence [Not Recovered/Not Resolved]
  - Psychomotor hyperactivity [Not Recovered/Not Resolved]

NARRATIVE: CASE EVENT DATE: 201703
